FAERS Safety Report 24176138 (Version 1)
Quarter: 2024Q3

REPORT INFORMATION
  Report Type: Spontaneous
  Country: US (occurrence: US)
  Receive Date: 20240806
  Receipt Date: 20240806
  Transmission Date: 20241016
  Serious: No
  Sender: ABBVIE
  Company Number: US-ABBVIE-5861699

PATIENT
  Age: 26 Year
  Sex: Female

DRUGS (7)
  1. BOTOX [Suspect]
     Active Substance: ONABOTULINUMTOXINA
     Indication: Muscle hypertrophy
     Dosage: TIME INTERVAL: AS NECESSARY: 20 UNITS
     Route: 065
     Dates: start: 20240622, end: 20240622
  2. BOTOX [Suspect]
     Active Substance: ONABOTULINUMTOXINA
     Indication: Muscle hypertrophy
     Dosage: TIME INTERVAL: AS NECESSARY: 30 UNITS
     Route: 065
     Dates: start: 20240622, end: 20240622
  3. BOTOX [Suspect]
     Active Substance: ONABOTULINUMTOXINA
     Indication: Muscle hypertrophy
     Dosage: TIME INTERVAL: AS NECESSARY: 40 U
     Route: 065
     Dates: start: 2023, end: 2023
  4. BOTOX [Suspect]
     Active Substance: ONABOTULINUMTOXINA
     Indication: Muscle hypertrophy
     Dosage: TIME INTERVAL: AS NECESSARY: 10 UNITS
     Route: 065
     Dates: start: 20240714, end: 20240714
  5. BOTOX [Suspect]
     Active Substance: ONABOTULINUMTOXINA
     Indication: Muscle hypertrophy
     Dosage: TIME INTERVAL: AS NECESSARY: 10 UNITS
     Route: 065
     Dates: start: 20240714, end: 20240714
  6. BOTOX [Suspect]
     Active Substance: ONABOTULINUMTOXINA
     Indication: Muscle hypertrophy
     Dosage: TIME INTERVAL: AS NECESSARY: 20 UNITS
     Route: 065
     Dates: start: 20240622, end: 20240622
  7. XEOMIN [Concomitant]
     Active Substance: INCOBOTULINUMTOXINA
     Indication: Product used for unknown indication

REACTIONS (3)
  - Off label use [Unknown]
  - Drug ineffective [Unknown]
  - Product preparation error [Unknown]

NARRATIVE: CASE EVENT DATE: 20230101
